FAERS Safety Report 8213132-7 (Version None)
Quarter: 2012Q1

REPORT INFORMATION
  Report Type: 
  Country: None (occurrence: None)
  Receive Date: 20120315
  Receipt Date: 20120309
  Transmission Date: 20120608
  Serious: Yes (Hospitalization, Other)
  Sender: FDA-Public Use
  Company Number: US-ABBOTT-12P-163-0914624-00

PATIENT
  Sex: Male
  Weight: 108.96 kg

DRUGS (9)
  1. HUMIRA [Suspect]
     Indication: RHEUMATOID ARTHRITIS
     Dates: start: 20090101
  2. HUMIRA [Suspect]
  3. FENOFIBRATE [Concomitant]
     Indication: BLOOD TRIGLYCERIDES INCREASED
  4. FISH OIL [Concomitant]
     Indication: PRODUCT USED FOR UNKNOWN INDICATION
  5. DAPRO [Concomitant]
     Indication: RHEUMATOID ARTHRITIS
  6. CARVEDILOL [Concomitant]
     Indication: HYPERTENSION
  7. LISINOPRIL [Concomitant]
     Indication: HYPERTENSION
  8. SIMVASTATIN [Concomitant]
     Indication: BLOOD TRIGLYCERIDES INCREASED
  9. ASPIRIN [Concomitant]
     Indication: PROPHYLAXIS

REACTIONS (7)
  - CORONARY ARTERY OCCLUSION [None]
  - VASCULAR GRAFT OCCLUSION [None]
  - DYSPNOEA [None]
  - CHEST DISCOMFORT [None]
  - FEELING ABNORMAL [None]
  - MYOCARDIAL INFARCTION [None]
  - DYSPNOEA EXERTIONAL [None]
